FAERS Safety Report 18263165 (Version 1)
Quarter: 2020Q3

REPORT INFORMATION
  Report Type: Spontaneous
  Country: HR (occurrence: HR)
  Receive Date: 20200914
  Receipt Date: 20200914
  Transmission Date: 20201103
  Serious: Yes (Other)
  Sender: FDA-Public Use
  Company Number: HR-TEVA-2020-HR-1826224

PATIENT
  Age: 29 Year
  Sex: Female

DRUGS (4)
  1. SUMAMED [Suspect]
     Active Substance: AZITHROMYCIN ANHYDROUS
     Dosage: DF=1 TBL
     Route: 048
     Dates: start: 20200729, end: 20200729
  2. KETONAL FORTE [Suspect]
     Active Substance: KETOPROFEN
     Dosage: 6?7 TABLETS AND 100 MG, 700 MG
     Route: 048
     Dates: start: 20200729, end: 20200729
  3. HELEX [Suspect]
     Active Substance: ALPRAZOLAM
     Dosage: 5 MG
     Route: 048
     Dates: start: 20200729, end: 20200729
  4. NORMABEL [Suspect]
     Active Substance: DIAZEPAM
     Dosage: 50 MG
     Route: 048
     Dates: start: 20200729, end: 20200729

REACTIONS (3)
  - Suicide attempt [Unknown]
  - Abdominal pain [Unknown]
  - Intentional overdose [Unknown]

NARRATIVE: CASE EVENT DATE: 20200729
